FAERS Safety Report 7681517-3 (Version None)
Quarter: 2011Q3

REPORT INFORMATION
  Report Type: 
  Country: None (occurrence: None)
  Receive Date: 20110812
  Receipt Date: 20110809
  Transmission Date: 20111222
  Serious: Yes (Hospitalization)
  Sender: FDA-Public Use
  Company Number: PHHY2011US61271

PATIENT
  Sex: Female
  Weight: 64.41 kg

DRUGS (2)
  1. EXJADE [Suspect]
     Indication: NEOPLASM
     Dosage: 500 MG, DAILY
     Route: 048
     Dates: start: 20090319
  2. EXJADE [Suspect]
     Indication: ANAEMIA

REACTIONS (3)
  - PANCYTOPENIA [None]
  - PAIN [None]
  - VIRAL INFECTION [None]
